FAERS Safety Report 8517415-2 (Version None)
Quarter: 2012Q3

REPORT INFORMATION
  Report Type: 
  Country: None (occurrence: None)
  Receive Date: 20120718
  Receipt Date: 20120713
  Transmission Date: 20120928
  Serious: No
  Sender: FDA-Public Use
  Company Number: US-PFIZER INC-2012169708

PATIENT
  Sex: Female
  Weight: 57.143 kg

DRUGS (1)
  1. TOVIAZ [Suspect]
     Indication: CYSTITIS
     Dosage: UNK
     Route: 048
     Dates: start: 20120101

REACTIONS (2)
  - CONSTIPATION [None]
  - DRY MOUTH [None]
